FAERS Safety Report 6576931-3 (Version None)
Quarter: 2010Q1

REPORT INFORMATION
  Report Type: 
  Country: None (occurrence: None)
  Receive Date: 20100210
  Receipt Date: 20100127
  Transmission Date: 20100710
  Serious: Yes (Life-Threatening, Hospitalization)
  Sender: FDA-Public Use
  Company Number: GB-MEDIMMUNE-MEDI-0010267

PATIENT
  Weight: 4.6 kg

DRUGS (4)
  1. SYNAGIS [Suspect]
     Indication: DIAPHRAGMATIC HERNIA
     Route: 030
     Dates: end: 20091230
  2. SYNAGIS [Suspect]
     Indication: VENTRICULAR SEPTAL DEFECT
  3. OXYGEN [Concomitant]
  4. GAVISCON [Concomitant]

REACTIONS (6)
  - BRONCHIOLITIS [None]
  - MECHANICAL VENTILATION [None]
  - RESPIRATORY FAILURE [None]
  - RESPIRATORY SYNCYTIAL VIRUS BRONCHIOLITIS [None]
  - RESPIRATORY TRACT INFECTION [None]
  - RHINOVIRUS INFECTION [None]
